FAERS Safety Report 17635291 (Version 1)
Quarter: 2020Q2

REPORT INFORMATION
  Report Type: Spontaneous
  Country: US (occurrence: US)
  Receive Date: 20200407
  Receipt Date: 20200407
  Transmission Date: 20200713
  Serious: Yes (Death, Hospitalization)
  Sender: FDA-Public Use
  Company Number: US-EMCURE PHARMACEUTICALS LTD-2020-EPL-000363

PATIENT
  Sex: Male

DRUGS (13)
  1. ONDANSETRON [Suspect]
     Active Substance: ONDANSETRON
     Indication: VOMITING
     Dosage: SYMPTOMATIC CARE
  2. METHADONE [Suspect]
     Active Substance: METHADONE HYDROCHLORIDE
     Indication: DRUG DETOXIFICATION
     Dosage: 20 MILLIGRAM  INITIAL DOSE
  3. HYDOXYZINE [Concomitant]
     Indication: SUPPORTIVE CARE
     Dosage: 50 MILLIGRAM TOTAL DOSE ON ON CLINICAL DAY 1
  4. METHADONE [Suspect]
     Active Substance: METHADONE HYDROCHLORIDE
     Dosage: CLINICAL DAY 2
  5. TRAZODONE [Suspect]
     Active Substance: TRAZODONE HYDROCHLORIDE
     Dosage: SYMPTOMATIC CARE
  6. IBUPROFEN. [Concomitant]
     Active Substance: IBUPROFEN
     Indication: SUPPORTIVE CARE
  7. VITAMIN SUPPLEMENTATION [Concomitant]
  8. METHADONE [Suspect]
     Active Substance: METHADONE HYDROCHLORIDE
     Dosage: 10 MILLIGRAM, TID 6?8-HOUR INTERVALS
     Route: 048
  9. TRAZODONE [Suspect]
     Active Substance: TRAZODONE HYDROCHLORIDE
     Indication: SUPPORTIVE CARE
     Dosage: 50 MILLIGRAM TOTAL DOSE ON ON CLINICAL DAY 1
  10. NICOTINE REPLACEMENT [Suspect]
     Active Substance: NICOTINE
  11. CHLORDIAZEPOXIDE. [Concomitant]
     Active Substance: CHLORDIAZEPOXIDE
     Indication: DRUG DETOXIFICATION
     Dosage: 200 MILLIGRAM
  12. CHLORDIAZEPOXIDE. [Concomitant]
     Active Substance: CHLORDIAZEPOXIDE
     Dosage: CLINICAL DAY 2
  13. ONDANSETRON [Suspect]
     Active Substance: ONDANSETRON
     Indication: SUPPORTIVE CARE
     Dosage: 4 MILLIGRAM
     Route: 030

REACTIONS (3)
  - Ventricular tachyarrhythmia [Fatal]
  - Electrocardiogram QT prolonged [Unknown]
  - Hypoglycaemia [Unknown]
